FAERS Safety Report 4292096-5 (Version None)
Quarter: 2004Q1

REPORT INFORMATION
  Report Type: 
  Country: None (occurrence: None)
  Receive Date: 20040211
  Receipt Date: 20031208
  Transmission Date: 20041129
  Serious: No
  Sender: FDA-Public Use
  Company Number: US-GLAXOSMITHKLINE-A0442333A

PATIENT
  Age: 52 Year
  Sex: Female

DRUGS (5)
  1. LAMICTAL [Suspect]
     Indication: BIPOLAR DISORDER
     Dosage: 75MG TWICE PER DAY
     Route: 048
     Dates: start: 20031110, end: 20031207
  2. TOPAMAX [Concomitant]
  3. DEPAKOTE [Concomitant]
  4. ZYPREXA [Concomitant]
  5. EFFEXOR [Concomitant]

REACTIONS (3)
  - LYMPHADENOPATHY [None]
  - MALAISE [None]
  - RASH [None]
